FAERS Safety Report 9047021 (Version 1)
Quarter: 2013Q1

REPORT INFORMATION
  Report Type: Spontaneous
  Country: US (occurrence: None)
  Receive Date: 20130129
  Receipt Date: 20130129
  Transmission Date: 20140127
  Serious: Yes (Other)
  Sender: FDA-Public Use
  Company Number: None

PATIENT
  Age: 81 Year
  Sex: Male

DRUGS (2)
  1. ZYTIGA 250MG JANSSEN BIOTECH [Suspect]
     Indication: PROSTATE CANCER
     Dosage: 4 TABLET ONCE A DAY?
     Route: 048
     Dates: start: 201209
  2. PREDNISONE [Suspect]
     Indication: PROSTATE CANCER
     Dosage: 1 TABLET
     Route: 048
     Dates: start: 201209

REACTIONS (4)
  - Muscle spasms [None]
  - Onychoclasis [None]
  - Motor dysfunction [None]
  - Muscle spasms [None]
